FAERS Safety Report 11314675 (Version 2)
Quarter: 2015Q3

REPORT INFORMATION
  Report Type: Spontaneous
  Country: JP (occurrence: JP)
  Receive Date: 20150727
  Receipt Date: 20150804
  Transmission Date: 20151125
  Serious: Yes (Other)
  Sender: FDA-Public Use
  Company Number: JP-BAYER-2015-381503

PATIENT
  Sex: Male
  Weight: 1.84 kg

DRUGS (5)
  1. UNFRACTIONATED HEPARIN [Suspect]
     Active Substance: HEPARIN SODIUM
     Route: 064
  2. ANTI THROMBIN III [Concomitant]
     Route: 064
  3. BAYASPIRIN [Suspect]
     Active Substance: ASPIRIN
     Indication: THROMBOSIS PROPHYLAXIS
     Dosage: 100 MG, QD
     Route: 064
  4. RITODRINE [Concomitant]
     Active Substance: RITODRINE
     Route: 064
  5. BETAMETHASONE. [Concomitant]
     Active Substance: BETAMETHASONE
     Route: 064

REACTIONS (3)
  - Premature baby [None]
  - Low birth weight baby [Recovered/Resolved]
  - Foetal exposure during pregnancy [None]
